FAERS Safety Report 8912175 (Version 1)
Quarter: 2012Q4

REPORT INFORMATION
  Report Type: 
  Country: BE (occurrence: BE)
  Receive Date: 20121116
  Receipt Date: 20121116
  Transmission Date: 20130627
  Serious: Yes (Other)
  Sender: FDA-Public Use
  Company Number: BE-BAYER-2012-117690

PATIENT
  Age: 32 Year
  Sex: Female

DRUGS (2)
  1. YAZ [Suspect]
     Indication: CONTRACEPTION
     Dosage: 1 DF, QD
     Route: 048
     Dates: start: 201106, end: 201202
  2. L-THYROXINE [Concomitant]

REACTIONS (11)
  - Thrombosis [Recovering/Resolving]
  - Hemiparesis [Recovering/Resolving]
  - Influenza like illness [None]
  - Oral herpes [Recovered/Resolved]
  - Oral mucosal blistering [Recovered/Resolved]
  - Eye swelling [None]
  - Eye pain [None]
  - Chest discomfort [Recovering/Resolving]
  - Mobility decreased [Recovering/Resolving]
  - Paraesthesia [Recovering/Resolving]
  - Oedema peripheral [Recovering/Resolving]
